FAERS Safety Report 6169252-4 (Version None)
Quarter: 2009Q2

REPORT INFORMATION
  Report Type: 
  Country: None (occurrence: None)
  Receive Date: 20090424
  Receipt Date: 20090417
  Transmission Date: 20091009
  Serious: Yes (Other)
  Sender: FDA-Public Use
  Company Number: 2009AL002255

PATIENT
  Sex: Male

DRUGS (1)
  1. DIGOXIN [Suspect]
     Dates: start: 20070501, end: 20080401

REACTIONS (2)
  - ECONOMIC PROBLEM [None]
  - INJURY [None]
